FAERS Safety Report 16068661 (Version 1)
Quarter: 2019Q1

REPORT INFORMATION
  Report Type: Report from Study
  Country: GB (occurrence: GB)
  Receive Date: 20190313
  Receipt Date: 20190313
  Transmission Date: 20190418
  Serious: Yes (Death, Hospitalization, Other)
  Sender: FDA-Public Use
  Company Number: GB-MYLANLABS-2019M1023342

PATIENT
  Age: 41 Year
  Sex: Male

DRUGS (3)
  1. TOBRAMYCIN MYLAN [Suspect]
     Active Substance: TOBRAMYCIN
     Indication: CYSTIC FIBROSIS
     Dosage: 600 MILLIGRAM, QD(300 MG, BID (ALTERNATING MONTHS))
     Route: 055
     Dates: start: 201806
  2. COLOMYCIN                          /00013203/ [Concomitant]
     Active Substance: COLISTIN SULFATE
     Indication: CYSTIC FIBROSIS
     Dosage: 2 UNK, QD((2 MILLION UNITS), BID)
     Route: 055
     Dates: start: 201806
  3. PULMOZYME [Concomitant]
     Active Substance: DORNASE ALFA
     Indication: CYSTIC FIBROSIS
     Dosage: 2.5 MILLIGRAM, QD
     Route: 055

REACTIONS (2)
  - General physical health deterioration [Unknown]
  - Death [Fatal]

NARRATIVE: CASE EVENT DATE: 201808
